FAERS Safety Report 18707328 (Version 1)
Quarter: 2021Q1

REPORT INFORMATION
  Report Type: Spontaneous
  Country: CN (occurrence: CN)
  Receive Date: 20210106
  Receipt Date: 20210106
  Transmission Date: 20210419
  Serious: Yes (Hospitalization, Other)
  Sender: FDA-Public Use
  Company Number: CN-PFIZER INC-2021000340

PATIENT
  Age: 65 Year
  Sex: Male
  Weight: 57 kg

DRUGS (4)
  1. ETOPOSIDE. [Suspect]
     Active Substance: ETOPOSIDE
     Indication: ACUTE LEUKAEMIA
     Dosage: 0.1 G, 1X/DAY
     Route: 041
     Dates: start: 20201217, end: 20201219
  2. SODIUM CHLORIDE. [Concomitant]
     Active Substance: SODIUM CHLORIDE
     Indication: VEHICLE SOLUTION USE
     Dosage: 250 ML, 1X/DAY
     Route: 041
     Dates: start: 20201217, end: 20201219
  3. CYTARABINE. [Suspect]
     Active Substance: CYTARABINE
     Indication: ACUTE LEUKAEMIA
     Dosage: 0.6 G, CYCLIC  (1X/6 DAY)
     Route: 041
     Dates: start: 20201217, end: 20201222
  4. SODIUM CHLORIDE. [Concomitant]
     Active Substance: SODIUM CHLORIDE
     Dosage: 144 ML, CYCLIC (1X/6 DAY)
     Route: 041
     Dates: start: 20201219, end: 20201222

REACTIONS (6)
  - Haemorrhage subcutaneous [Unknown]
  - Nerve injury [Unknown]
  - Platelet count decreased [Unknown]
  - Decreased appetite [Unknown]
  - White blood cell count decreased [Unknown]
  - Cytopenia [Unknown]

NARRATIVE: CASE EVENT DATE: 202012
